FAERS Safety Report 9338291 (Version 2)
Quarter: 2013Q3

REPORT INFORMATION
  Report Type: Spontaneous
  Country: US (occurrence: US)
  Receive Date: 20130610
  Receipt Date: 20130829
  Transmission Date: 20140515
  Serious: Yes (Other)
  Sender: FDA-Public Use
  Company Number: US-AMGEN-USASP2013039820

PATIENT
  Age: 29 Year
  Sex: Female
  Weight: 133 kg

DRUGS (4)
  1. ENBREL [Suspect]
     Indication: RHEUMATOID ARTHRITIS
     Dosage: 50 MG, QWK
     Route: 065
     Dates: start: 20000801
  2. PRENATAL VITAMINS                  /07499601/ [Concomitant]
     Dosage: UNK
     Dates: end: 20090501
  3. FOLIC ACID [Concomitant]
     Dosage: 1 MG, QD
  4. PREDNISONE [Concomitant]
     Dosage: 5 MG, QD
     Dates: end: 20090501

REACTIONS (4)
  - Premature delivery [Recovered/Resolved]
  - Gestational diabetes [Unknown]
  - Amniorrhoea [Unknown]
  - Caesarean section [Recovered/Resolved]
